FAERS Safety Report 5810715-6 (Version None)
Quarter: 2008Q3

REPORT INFORMATION
  Report Type: 
  Country: None (occurrence: None)
  Receive Date: 20080710
  Receipt Date: 20080625
  Transmission Date: 20090109
  Serious: Yes (Hospitalization)
  Sender: FDA-Public Use
  Company Number: 2008BI009499

PATIENT
  Age: 53 Year
  Sex: Female

DRUGS (7)
  1. AVONEX [Suspect]
     Indication: MULTIPLE SCLEROSIS
     Dosage: 30 UG; QW; IM
     Route: 030
  2. NEXIUM [Concomitant]
  3. DOCUSATE [Concomitant]
  4. PREDNISONE TAB [Concomitant]
  5. LEVAQUIN [Concomitant]
  6. NORVASC [Concomitant]
  7. FLUOXETINE [Concomitant]

REACTIONS (20)
  - AORTIC THROMBOSIS [None]
  - ARTERIOSCLEROSIS [None]
  - BLOOD POTASSIUM INCREASED [None]
  - CHRONIC OBSTRUCTIVE PULMONARY DISEASE [None]
  - DELIRIUM [None]
  - DEPRESSION [None]
  - DIALYSIS [None]
  - DISORIENTATION [None]
  - ERYTHEMA [None]
  - HYPERGLYCAEMIA [None]
  - ILIAC ARTERY THROMBOSIS [None]
  - INTERSTITIAL LUNG DISEASE [None]
  - LEG AMPUTATION [None]
  - PERIPHERAL ISCHAEMIA [None]
  - PNEUMONIA [None]
  - RENAL FAILURE ACUTE [None]
  - RESPIRATORY FAILURE [None]
  - RHABDOMYOLYSIS [None]
  - SEVERE ACUTE RESPIRATORY SYNDROME [None]
  - THROMBOSIS [None]
